FAERS Safety Report 5929788-5 (Version None)
Quarter: 2008Q4

REPORT INFORMATION
  Report Type: 
  Country: None (occurrence: None)
  Receive Date: 20081024
  Receipt Date: 20081020
  Transmission Date: 20090506
  Serious: Yes (Other)
  Sender: FDA-Public Use
  Company Number: JP-GILEAD-2008-0018334

PATIENT
  Age: 33 Year
  Sex: Female

DRUGS (4)
  1. VIREAD [Suspect]
     Route: 048
     Dates: start: 20060109, end: 20070301
  2. REYATAZ [Concomitant]
     Route: 048
     Dates: start: 20060109, end: 20070301
  3. EPIVIR [Concomitant]
     Route: 048
     Dates: start: 20060109, end: 20070301
  4. SUSTIVA [Concomitant]
     Route: 048
     Dates: start: 20060109, end: 20070301

REACTIONS (1)
  - ABORTION INDUCED [None]
